FAERS Safety Report 10063354 (Version 1)
Quarter: 2014Q2

REPORT INFORMATION
  Report Type: Spontaneous
  Country: FR (occurrence: FR)
  Receive Date: 20140407
  Receipt Date: 20140407
  Transmission Date: 20141212
  Serious: Yes (Other)
  Sender: FDA-Public Use
  Company Number: FR-B.I. PHARMACEUTICALS,INC./RIDGEFIELD-2014-BI-14720FF

PATIENT
  Age: 61 Year
  Sex: Male

DRUGS (5)
  1. SPIRIVA [Suspect]
     Indication: CHRONIC OBSTRUCTIVE PULMONARY DISEASE
     Route: 055
  2. SPIRIVA [Suspect]
     Route: 048
     Dates: start: 20140401, end: 20140401
  3. SERETIDE [Concomitant]
     Route: 065
  4. TARCEVA [Concomitant]
     Indication: LUNG NEOPLASM MALIGNANT
     Route: 048
  5. PALLIATIVE TREATMENT FOR CHEMOTHERAPY ADVERSE EVENTS [Concomitant]
     Route: 065

REACTIONS (5)
  - Lung neoplasm malignant [Not Recovered/Not Resolved]
  - Haemorrhage [Unknown]
  - Memory impairment [Not Recovered/Not Resolved]
  - Hernial eventration [Unknown]
  - Incorrect route of drug administration [Recovered/Resolved]
